FAERS Safety Report 5220830-6 (Version None)
Quarter: 2007Q1

REPORT INFORMATION
  Report Type: 
  Country: None (occurrence: None)
  Receive Date: 20070123
  Receipt Date: 20070109
  Transmission Date: 20070707
  Serious: Yes (Other)
  Sender: FDA-Public Use
  Company Number: 151739ISR

PATIENT
  Age: 65 Year
  Sex: Male

DRUGS (2)
  1. VERAPAMIL [Suspect]
     Indication: ATRIAL FIBRILLATION
     Dosage: 120 MG (40 MG, 3 - IN 1 D)
     Route: 048
  2. WARFARIN SODIUM [Suspect]
     Dosage: (1 MG)
     Route: 048

REACTIONS (2)
  - DRUG INTERACTION [None]
  - DRUG LEVEL INCREASED [None]
